FAERS Safety Report 5693408-8 (Version None)
Quarter: 2008Q2

REPORT INFORMATION
  Report Type: 
  Country: None (occurrence: None)
  Receive Date: 20080403
  Receipt Date: 20080326
  Transmission Date: 20081010
  Serious: Yes (Death, Hospitalization)
  Sender: FDA-Public Use
  Company Number: PHEH2008US01553

PATIENT
  Age: 42 Year
  Sex: Male
  Weight: 54.104 kg

DRUGS (1)
  1. NEORAL [Suspect]
     Indication: HEART TRANSPLANT
     Dosage: 100-125 MG, BID
     Route: 048
     Dates: start: 20061106, end: 20080112

REACTIONS (23)
  - ACUTE RESPIRATORY FAILURE [None]
  - BRADYCARDIA [None]
  - CARDIAC ARREST [None]
  - CARDIAC FAILURE ACUTE [None]
  - CARDIAC FAILURE CONGESTIVE [None]
  - CARDIOGENIC SHOCK [None]
  - CATHETERISATION CARDIAC [None]
  - COMPLICATIONS OF TRANSPLANTED HEART [None]
  - DIALYSIS [None]
  - DYSPNOEA [None]
  - EJECTION FRACTION DECREASED [None]
  - ENDOTRACHEAL INTUBATION [None]
  - HEART TRANSPLANT REJECTION [None]
  - HYPOTENSION [None]
  - MULTI-ORGAN FAILURE [None]
  - MYOCARDIAL ISCHAEMIA [None]
  - NECROSIS [None]
  - OEDEMA [None]
  - PULMONARY OEDEMA [None]
  - RENAL FAILURE ACUTE [None]
  - STRESS [None]
  - VASCULAR INJURY [None]
  - VENTRICULAR HYPOKINESIA [None]
